FAERS Safety Report 17434215 (Version 11)
Quarter: 2021Q1

REPORT INFORMATION
  Report Type: Spontaneous
  Country: US (occurrence: US)
  Receive Date: 20200219
  Receipt Date: 20210311
  Transmission Date: 20210419
  Serious: Yes (Other)
  Sender: FDA-Public Use
  Company Number: US-PFIZER INC-2020072166

PATIENT
  Age: 43 Year
  Sex: Female

DRUGS (3)
  1. XELJANZ [Interacting]
     Active Substance: TOFACITINIB CITRATE
     Dosage: 5 MG, 2X/DAY
     Dates: start: 202003
  2. XELJANZ [Interacting]
     Active Substance: TOFACITINIB CITRATE
     Indication: POLYARTHRITIS
     Dosage: 5 MG, 2X/DAY
     Route: 048
     Dates: start: 202002
  3. XELJANZ [Suspect]
     Active Substance: TOFACITINIB CITRATE
     Indication: RHEUMATOID ARTHRITIS
     Dosage: 5 MG, 2X/DAY
     Route: 048
     Dates: start: 20200204, end: 202002

REACTIONS (14)
  - Renal impairment [Unknown]
  - Insomnia [Unknown]
  - Chest discomfort [Unknown]
  - Bone pain [Unknown]
  - Absence of immediate treatment response [Unknown]
  - Pyrexia [Unknown]
  - Fatigue [Unknown]
  - Myalgia [Unknown]
  - Diabetes mellitus [Unknown]
  - Diabetic gastroparesis [Unknown]
  - COVID-19 [Unknown]
  - Nasal congestion [Recovering/Resolving]
  - Rheumatoid arthritis [Unknown]
  - Drug interaction [Unknown]

NARRATIVE: CASE EVENT DATE: 202002
